APPROVED DRUG PRODUCT: IBUPROHM
Active Ingredient: IBUPROFEN
Strength: 400MG
Dosage Form/Route: TABLET;ORAL
Application: A070469 | Product #001
Applicant: OHM LABORATORIES INC.
Approved: Aug 29, 1985 | RLD: No | RS: No | Type: DISCN